FAERS Safety Report 7259743-7 (Version None)
Quarter: 2011Q1

REPORT INFORMATION
  Report Type: 
  Country: None (occurrence: None)
  Receive Date: 20110130
  Receipt Date: 20100902
  Transmission Date: 20110831
  Serious: No
  Sender: FDA-Public Use
  Company Number: US-ABBOTT-10P-163-0662432-00

PATIENT
  Age: 20 Year
  Sex: Male

DRUGS (4)
  1. METHOTREXATE [Concomitant]
     Indication: CROHN'S DISEASE
  2. HUMIRA [Suspect]
     Indication: CROHN'S DISEASE
     Dates: start: 20100616
  3. FOLIC ACID [Concomitant]
     Indication: VITAMIN SUPPLEMENTATION
  4. GINGER [Concomitant]
     Indication: VITAMIN SUPPLEMENTATION

REACTIONS (5)
  - OCULAR HYPERAEMIA [None]
  - URTICARIA [None]
  - ERYTHEMA [None]
  - EYE PRURITUS [None]
  - SWELLING FACE [None]
